FAERS Safety Report 10179037 (Version 1)
Quarter: 2014Q2

REPORT INFORMATION
  Report Type: Spontaneous
  Country: US (occurrence: US)
  Receive Date: 20140519
  Receipt Date: 20140519
  Transmission Date: 20141212
  Serious: No
  Sender: FDA-Public Use
  Company Number: US-BIOGENIDEC-2014BI042064

PATIENT
  Sex: Female

DRUGS (4)
  1. TECFIDERA [Suspect]
     Indication: MULTIPLE SCLEROSIS
     Route: 048
     Dates: start: 2013
  2. TYSABRI [Concomitant]
     Indication: MULTIPLE SCLEROSIS
  3. AVONEX [Concomitant]
     Indication: MULTIPLE SCLEROSIS
  4. ETHINYL ESTRADIOL [Concomitant]
     Dates: start: 2000

REACTIONS (7)
  - Cognitive disorder [Unknown]
  - Menopause [Unknown]
  - Hyperhidrosis [Unknown]
  - Skin odour abnormal [Not Recovered/Not Resolved]
  - Pruritus [Unknown]
  - Rash [Unknown]
  - Hot flush [Not Recovered/Not Resolved]
